FAERS Safety Report 7331470-7 (Version None)
Quarter: 2011Q1

REPORT INFORMATION
  Report Type: 
  Country: None (occurrence: None)
  Receive Date: 20110304
  Receipt Date: 20110228
  Transmission Date: 20110831
  Serious: Yes (Hospitalization)
  Sender: FDA-Public Use
  Company Number: JP-PFIZER INC-2011009863

PATIENT
  Age: 59 Year
  Sex: Female

DRUGS (3)
  1. DSP-8153 [Suspect]
     Indication: ESSENTIAL HYPERTENSION
     Dosage: 1 DF, 1X/DAY
     Route: 048
     Dates: start: 20101116, end: 20110111
  2. AMLODIPINE BESILATE [Concomitant]
     Indication: ESSENTIAL HYPERTENSION
     Dosage: UNK
     Route: 048
     Dates: start: 20000101
  3. LIPITOR [Concomitant]
     Indication: HYPERCHOLESTEROLAEMIA
     Dosage: 5 MG/DAY
     Route: 048
     Dates: start: 20101013, end: 20101115

REACTIONS (1)
  - CEREBRAL HAEMORRHAGE [None]
